FAERS Safety Report 12845649 (Version 2)
Quarter: 2017Q2

REPORT INFORMATION
  Report Type: Report from Study
  Country: US (occurrence: US)
  Receive Date: 20161013
  Receipt Date: 20170508
  Transmission Date: 20170830
  Serious: Yes (Hospitalization)
  Sender: FDA-Public Use
  Company Number: US-ACTELION-A-US2016-138405

PATIENT
  Age: 74 Year
  Sex: Female

DRUGS (7)
  1. DILTIAZEM. [Concomitant]
     Active Substance: DILTIAZEM
  2. UPTRAVI [Suspect]
     Active Substance: SELEXIPAG
     Dosage: 600 MCG, BID
     Route: 048
  3. ADCIRCA [Concomitant]
     Active Substance: TADALAFIL
  4. UPTRAVI [Suspect]
     Active Substance: SELEXIPAG
     Indication: PULMONARY HYPERTENSION
     Dosage: 200 MCG, BID
     Route: 048
     Dates: start: 20160602
  5. UPTRAVI [Suspect]
     Active Substance: SELEXIPAG
     Dosage: 400 MCG, BID
     Route: 048
  6. OPSUMIT [Suspect]
     Active Substance: MACITENTAN
     Indication: PULMONARY HYPERTENSION
     Dosage: 10 MG, QD
     Route: 048
     Dates: start: 20140927
  7. AFRIN [Concomitant]
     Active Substance: OXYMETAZOLINE
     Dosage: UNK

REACTIONS (16)
  - Neck pain [Unknown]
  - Pain in jaw [Unknown]
  - Abdominal pain upper [Unknown]
  - Nasal congestion [Recovered/Resolved]
  - Pneumonia [Unknown]
  - Asthenia [Unknown]
  - Viral upper respiratory tract infection [Unknown]
  - Musculoskeletal pain [Unknown]
  - Dyspnoea [Recovered/Resolved]
  - Toothache [Unknown]
  - Constipation [Recovered/Resolved]
  - Blood pressure decreased [Unknown]
  - Headache [Unknown]
  - Rhinitis allergic [Recovered/Resolved]
  - Condition aggravated [Recovered/Resolved]
  - Unevaluable event [Unknown]

NARRATIVE: CASE EVENT DATE: 20150214
